FAERS Safety Report 19478023 (Version 1)
Quarter: 2021Q2

REPORT INFORMATION
  Report Type: Spontaneous
  Country: SE (occurrence: SE)
  Receive Date: 20210630
  Receipt Date: 20210630
  Transmission Date: 20210717
  Serious: Yes (Other)
  Sender: FDA-Public Use
  Company Number: SE-PFIZER INC-2021764649

PATIENT
  Sex: Male

DRUGS (1)
  1. METHOTREXATE SODIUM. [Suspect]
     Active Substance: METHOTREXATE SODIUM
     Indication: RHEUMATIC DISORDER
     Dosage: 4 DF, WEEKLY
     Route: 048

REACTIONS (5)
  - Muscle atrophy [Unknown]
  - Cardiac amyloidosis [Unknown]
  - Fatigue [Unknown]
  - Dizziness [Unknown]
  - Cardiac failure [Unknown]
